FAERS Safety Report 4990560-4 (Version None)
Quarter: 2006Q2

REPORT INFORMATION
  Report Type: 
  Country: None (occurrence: None)
  Receive Date: 20060427
  Receipt Date: 20060421
  Transmission Date: 20061013
  Serious: Yes (Hospitalization)
  Sender: FDA-Public Use
  Company Number: BASF-06-001

PATIENT
  Age: 28 Year
  Sex: Female

DRUGS (3)
  1. IBUPROFEN [Suspect]
     Indication: PAIN
     Dosage: 800 MG TID ORAL
     Route: 048
     Dates: start: 20060412, end: 20060412
  2. IBUPROFEN [Suspect]
     Indication: PAIN
     Dosage: 800 MG ORAL
     Route: 048
     Dates: start: 20050415, end: 20050415
  3. DARVOCET-N 100 [Suspect]
     Indication: PAIN
     Dosage: ORAL
     Route: 048

REACTIONS (2)
  - DRUG HYPERSENSITIVITY [None]
  - MYOSITIS [None]
